FAERS Safety Report 13654762 (Version 1)
Quarter: 2017Q2

REPORT INFORMATION
  Report Type: Spontaneous
  Country: US (occurrence: US)
  Receive Date: 20170614
  Receipt Date: 20170614
  Transmission Date: 20170830
  Serious: Yes (Other)
  Sender: FDA-Public Use
  Company Number: None

PATIENT
  Age: 85 Year
  Sex: Female
  Weight: 64.8 kg

DRUGS (1)
  1. BEZLOTOXUMAB [Suspect]
     Active Substance: BEZLOTOXUMAB
     Indication: CLOSTRIDIUM DIFFICILE INFECTION
     Dosage: ?          OTHER FREQUENCY:ONCE;?
     Route: 042

REACTIONS (2)
  - Conjunctivitis [None]
  - Rash macular [None]

NARRATIVE: CASE EVENT DATE: 20170606
